FAERS Safety Report 17495756 (Version 1)
Quarter: 2020Q1

REPORT INFORMATION
  Report Type: Spontaneous
  Country: US (occurrence: US)
  Receive Date: 20200303
  Receipt Date: 20200303
  Transmission Date: 20200409
  Serious: No
  Sender: FDA-Public Use
  Company Number: US-VIFOR (INTERNATIONAL) INC.-VIT-2020-03160

PATIENT
  Age: 69 Year
  Sex: Male

DRUGS (10)
  1. VELTASSA [Suspect]
     Active Substance: PATIROMER
     Indication: BLOOD POTASSIUM INCREASED
     Route: 048
     Dates: start: 20200131, end: 20200203
  2. COMPAZINE [Concomitant]
     Active Substance: PROCHLORPERAZINE MALEATE
  3. BORTEZOMIB. [Concomitant]
     Active Substance: BORTEZOMIB
     Indication: CHEMOTHERAPY
  4. ACYCLOVIR. [Concomitant]
     Active Substance: ACYCLOVIR
  5. JANUVIA [Concomitant]
     Active Substance: SITAGLIPTIN PHOSPHATE
  6. CYTOXAN [Concomitant]
     Active Substance: CYCLOPHOSPHAMIDE
     Indication: CHEMOTHERAPY
  7. CIPROFLOXACIN. [Concomitant]
     Active Substance: CIPROFLOXACIN
  8. ZOCOR [Concomitant]
     Active Substance: SIMVASTATIN
  9. ALLOPURINOL. [Concomitant]
     Active Substance: ALLOPURINOL
  10. OMEPRAZOLE. [Concomitant]
     Active Substance: OMEPRAZOLE

REACTIONS (2)
  - No adverse event [Unknown]
  - Product dose omission [Unknown]

NARRATIVE: CASE EVENT DATE: 20200204
